FAERS Safety Report 6750418-7 (Version None)
Quarter: 2010Q2

REPORT INFORMATION
  Report Type: 
  Country: None (occurrence: None)
  Receive Date: 20100601
  Receipt Date: 20100519
  Transmission Date: 20101027
  Serious: Yes (Life-Threatening, Hospitalization, Other)
  Sender: FDA-Public Use
  Company Number: CA-ELI_LILLY_AND_COMPANY-CA201005005459

PATIENT
  Sex: Male
  Weight: 90 kg

DRUGS (5)
  1. ZYPREXA ZYDIS [Suspect]
     Indication: SOMATIC DELUSION
     Dosage: 5 MG, DAILY (1/D)
     Dates: start: 20061001, end: 20081120
  2. GABAPENTIN [Concomitant]
     Dosage: 200 MEQ, DAILY (1/D)
     Dates: start: 20020401
  3. SODIUM THIOSULFATE [Concomitant]
     Dosage: 2.5 G, DAILY (1/D)
     Dates: start: 20031101
  4. CETIRIZINE HCL [Concomitant]
     Dosage: 10 MG, DAILY (1/D)
     Dates: start: 20070801
  5. RABEPRAZOLE SODIUM [Concomitant]
     Dosage: 250 MG, 2/D
     Dates: start: 20050101

REACTIONS (7)
  - ATRIAL FLUTTER [None]
  - BLOOD CALCIUM DECREASED [None]
  - ELECTROCARDIOGRAM QT PROLONGED [None]
  - FALL [None]
  - LOSS OF CONSCIOUSNESS [None]
  - TROPONIN INCREASED [None]
  - VENTRICULAR TACHYCARDIA [None]
